FAERS Safety Report 7125240-2 (Version None)
Quarter: 2010Q4

REPORT INFORMATION
  Report Type: 
  Country: None (occurrence: None)
  Receive Date: 20101129
  Receipt Date: 20101124
  Transmission Date: 20110411
  Serious: Yes (Death)
  Sender: FDA-Public Use
  Company Number: PHHY2010BE79995

PATIENT
  Sex: Female

DRUGS (3)
  1. EXELON [Suspect]
     Indication: DEMENTIA ALZHEIMER'S TYPE
     Dosage: 4.6 MG
     Route: 062
     Dates: start: 20100814, end: 20100818
  2. PROLOPA [Concomitant]
     Indication: PARKINSON'S DISEASE
     Dosage: 4 X 1/2 TABLETS DAILY
  3. PERMAX [Concomitant]
     Indication: PARKINSON'S DISEASE
     Dosage: 1.5 MG, QD

REACTIONS (5)
  - CARDIAC ARREST [None]
  - DISSEMINATED INTRAVASCULAR COAGULATION [None]
  - DYSPHAGIA [None]
  - ISCHAEMIC HEPATITIS [None]
  - RENAL FAILURE [None]
